FAERS Safety Report 7980323-X (Version None)
Quarter: 2011Q4

REPORT INFORMATION
  Report Type: 
  Country: None (occurrence: None)
  Receive Date: 20111212
  Receipt Date: 20111125
  Transmission Date: 20120403
  Serious: Yes (Hospitalization)
  Sender: FDA-Public Use
  Company Number: COL_10399_2011

PATIENT
  Sex: Male

DRUGS (3)
  1. CHLORHEXIDINE GLUCONATE [Suspect]
     Indication: ORAL DISCOMFORT
     Dosage: (1 DF BID)
     Dates: start: 20110524, end: 20110601
  2. CHLORHEXIDINE GLUCONATE [Suspect]
     Indication: GINGIVITIS
     Dosage: (1 DF BID)
     Dates: start: 20110524, end: 20110601
  3. CHLORHEXIDINE GLUCONATE [Suspect]
     Indication: DENTAL PLAQUE
     Dosage: (1 DF BID)
     Dates: start: 20110524, end: 20110601

REACTIONS (12)
  - BURNING SENSATION [None]
  - MALAISE [None]
  - DYSPNOEA [None]
  - ASBESTOSIS [None]
  - FEELING ABNORMAL [None]
  - DRY MOUTH [None]
  - LIP PAIN [None]
  - ORAL DISCOMFORT [None]
  - TOOTH DISORDER [None]
  - ORAL DISORDER [None]
  - CARDIAC FAILURE [None]
  - OEDEMA [None]
